FAERS Safety Report 9626460 (Version 1)
Quarter: 2013Q4

REPORT INFORMATION
  Report Type: Spontaneous
  Country: US (occurrence: US)
  Receive Date: 20131016
  Receipt Date: 20131016
  Transmission Date: 20140711
  Serious: Yes (Other)
  Sender: FDA-Public Use
  Company Number: US-BAYER-2013-122768

PATIENT
  Age: 38 Year
  Sex: Male
  Weight: 70 kg

DRUGS (1)
  1. DOMEBORO POWDER PACKETS [Suspect]
     Dosage: 1 DOSE, ONCE
     Route: 055
     Dates: start: 20131006, end: 20131006

REACTIONS (4)
  - Oropharyngeal discomfort [Recovered/Resolved]
  - Nasal discomfort [Recovered/Resolved]
  - Headache [Not Recovered/Not Resolved]
  - Accidental exposure to product [Recovered/Resolved]
